FAERS Safety Report 5072516-9 (Version None)
Quarter: 2006Q3

REPORT INFORMATION
  Report Type: 
  Country: None (occurrence: None)
  Receive Date: 20060807
  Receipt Date: 20060726
  Transmission Date: 20061208
  Serious: Yes (Death)
  Sender: FDA-Public Use
  Company Number: JP-BRISTOL-MYERS SQUIBB COMPANY-13456389

PATIENT
  Age: 71 Year
  Sex: Male

DRUGS (2)
  1. TAXOL [Suspect]
     Indication: OESOPHAGEAL CARCINOMA
     Route: 041
     Dates: start: 20060502, end: 20060614
  2. TAKEPRON [Suspect]
     Indication: OESOPHAGITIS
     Route: 048
     Dates: start: 20060531, end: 20060628

REACTIONS (1)
  - INTERSTITIAL LUNG DISEASE [None]
